FAERS Safety Report 9448476 (Version 1)
Quarter: 2013Q3

REPORT INFORMATION
  Report Type: Spontaneous
  Country: FR (occurrence: None)
  Receive Date: 20130806
  Receipt Date: 20130806
  Transmission Date: 20140515
  Serious: Yes (Life-Threatening)
  Sender: FDA-Public Use
  Company Number: 1754126

PATIENT
  Age: 68 Year
  Sex: Male

DRUGS (5)
  1. CARBOPLATIN [Suspect]
     Indication: PRODUCT USED FOR UNKNOWN INDICATION
     Route: 042
     Dates: start: 20110523
  2. ALIMTA [Suspect]
     Indication: PRODUCT USED FOR UNKNOWN INDICATION
     Route: 042
     Dates: start: 20110523
  3. GENTAMICINE [Suspect]
     Indication: PRODUCT USED FOR UNKNOWN INDICATION
     Dosage: 250 MILLIGRAMS (1 DAY )
     Route: 042
     Dates: start: 20110601, end: 20110602
  4. PIPERACILLIN TAZOBACTAM [Suspect]
     Indication: PRODUCT USED FOR UNKNOWN INDICATION
     Dosage: 4 GRAM (3 DAYS)
     Route: 042
     Dates: start: 20110601, end: 20110603
  5. ZELITREX [Suspect]
     Indication: PRODUCT USED FOR UNKNOWN INDICATION
     Route: 048
     Dates: start: 20110512, end: 20110606

REACTIONS (9)
  - Renal failure acute [None]
  - Condition aggravated [None]
  - Klebsiella sepsis [None]
  - Febrile bone marrow aplasia [None]
  - Fluid overload [None]
  - Oedema peripheral [None]
  - Pleural effusion [None]
  - Dialysis [None]
  - Cardiac arrest [None]
